FAERS Safety Report 7258561-3 (Version None)
Quarter: 2011Q1

REPORT INFORMATION
  Report Type: 
  Country: None (occurrence: None)
  Receive Date: 20110129
  Receipt Date: 20100517
  Transmission Date: 20110831
  Serious: No
  Sender: FDA-Public Use
  Company Number: US-ABBOTT-10P-163-0645453-00

PATIENT
  Age: 54 Year
  Sex: Female

DRUGS (2)
  1. FLEXERIL [Concomitant]
     Indication: MUSCLE SPASMS
     Route: 048
  2. HUMIRA [Suspect]
     Indication: RHEUMATOID ARTHRITIS

REACTIONS (4)
  - INJECTION SITE NODULE [None]
  - INJECTION SITE DISCOLOURATION [None]
  - DEVICE MALFUNCTION [None]
  - DRUG DOSE OMISSION [None]
